FAERS Safety Report 4535041-7 (Version None)
Quarter: 2004Q4

REPORT INFORMATION
  Report Type: 
  Country: None (occurrence: None)
  Receive Date: 20041214
  Receipt Date: 20041105
  Transmission Date: 20050328
  Serious: Yes (Other)
  Sender: FDA-Public Use
  Company Number: 2004090183

PATIENT
  Age: 51 Year
  Sex: Male
  Weight: 108.8633 kg

DRUGS (8)
  1. BEXTRA [Suspect]
     Indication: INFLAMMATION
     Dosage: 20 MG (10 MG, 1 IN 2 D), ORAL
     Route: 048
     Dates: start: 20041101
  2. ALLOPURINOL [Suspect]
  3. AMLODIPINE BESYLATE [Concomitant]
  4. COLCHINE (COLCHINE) [Concomitant]
  5. ATORVASTATIN (ATORVASTATIN) [Concomitant]
  6. VALSARTAN (VALSARTAN) [Concomitant]
  7. FOLIC ACID (FOLIC ACID0 [Concomitant]
  8. STARLIX [Concomitant]

REACTIONS (1)
  - BLOOD GLUCOSE INCREASED [None]
